FAERS Safety Report 7401402-1 (Version None)
Quarter: 2011Q2

REPORT INFORMATION
  Report Type: 
  Country: None (occurrence: None)
  Receive Date: 20110407
  Receipt Date: 20110328
  Transmission Date: 20111010
  Serious: Yes (Death, Life-Threatening, Hospitalization, Disabling)
  Sender: FDA-Public Use
  Company Number: US-BAXTER-2011BH002107

PATIENT
  Age: 63 Year
  Sex: Female
  Weight: 73 kg

DRUGS (1)
  1. DIANEAL [Suspect]
     Indication: PERITONEAL DIALYSIS
     Route: 033
     Dates: start: 20100601, end: 20110201

REACTIONS (5)
  - GANGRENE [None]
  - EXTREMITY NECROSIS [None]
  - IMPAIRED HEALING [None]
  - DEATH [None]
  - PERIPHERAL ISCHAEMIA [None]
